FAERS Safety Report 9072375 (Version 1)
Quarter: 2013Q1

REPORT INFORMATION
  Report Type: Report from Study
  Country: US (occurrence: US)
  Receive Date: 20130129
  Receipt Date: 20130129
  Transmission Date: 20140127
  Serious: No
  Sender: FDA-Public Use
  Company Number: US-ABBOTT-12P-163-0938865-00

PATIENT
  Age: 9 Year
  Sex: Female

DRUGS (5)
  1. HUMIRA 40 MG/ 0.8 ML PRE-FILLED SYRINGE [Suspect]
     Indication: JUVENILE IDIOPATHIC ARTHRITIS
     Dates: start: 20120326
  2. ADVAIR [Concomitant]
     Indication: ASTHMA
     Dosage: TWO PUFFS DAILY
  3. NASONEX [Concomitant]
     Indication: HYPERSENSITIVITY
     Dosage: DAILY
  4. FOLIC ACID [Concomitant]
     Indication: PROPHYLAXIS
  5. VITAMIN E [Concomitant]
     Indication: PROPHYLAXIS

REACTIONS (2)
  - Malaise [Recovering/Resolving]
  - Pharyngitis [Recovering/Resolving]
